FAERS Safety Report 9374445 (Version 2)
Quarter: 2013Q3

REPORT INFORMATION
  Report Type: Spontaneous
  Country: GB (occurrence: GB)
  Receive Date: 20130628
  Receipt Date: 20130705
  Transmission Date: 20140515
  Serious: Yes (Other)
  Sender: FDA-Public Use
  Company Number: GB-009507513-0803GBR00027

PATIENT
  Age: 75 Year
  Sex: Male
  Weight: 103 kg

DRUGS (5)
  1. SIMVASTATIN [Suspect]
     Dosage: 40 MG, QD
     Route: 048
     Dates: start: 2005, end: 2005
  2. CANDESARTAN CILEXETIL [Concomitant]
     Dosage: 8 MG, QD
     Route: 048
  3. ATORVASTATIN [Concomitant]
     Dosage: UNK
  4. TAMSULOSIN HYDROCHLORIDE [Concomitant]
     Indication: HYPERTENSION
     Dosage: 400 MG, QD
  5. ASPIRIN [Concomitant]
     Dosage: 75 MG, QD

REACTIONS (2)
  - Transient ischaemic attack [Unknown]
  - Diarrhoea [Unknown]
